FAERS Safety Report 17888818 (Version 1)
Quarter: 2020Q2

REPORT INFORMATION
  Report Type: Spontaneous
  Country: FR (occurrence: FR)
  Receive Date: 20200612
  Receipt Date: 20200612
  Transmission Date: 20200714
  Serious: Yes (Other)
  Sender: FDA-Public Use
  Company Number: FR-ENDO PHARMACEUTICALS INC-2020-004269

PATIENT

DRUGS (3)
  1. NITAZOXANIDE [Concomitant]
     Active Substance: NITAZOXANIDE
     Indication: PRODUCT USED FOR UNKNOWN INDICATION
     Dosage: UNK UNKNOWN, UNKNOWN
     Route: 065
  2. DISULFIRAM. [Suspect]
     Active Substance: DISULFIRAM
     Dosage: 62.5 MG, UNKOWN PER DAY X 3WK
     Route: 065
  3. DISULFIRAM. [Suspect]
     Active Substance: DISULFIRAM
     Indication: LYME DISEASE
     Dosage: 250 MG, UNKOWN PER DAY X 3WK
     Route: 065

REACTIONS (3)
  - Cranial nerve disorder [Unknown]
  - Jarisch-Herxheimer reaction [Unknown]
  - Off label use [Unknown]
